FAERS Safety Report 8984525 (Version 2)
Quarter: 2013Q4

REPORT INFORMATION
  Report Type: Spontaneous
  Country: US (occurrence: US)
  Receive Date: 20121226
  Receipt Date: 20131014
  Transmission Date: 20140711
  Serious: Yes (Hospitalization)
  Sender: FDA-Public Use
  Company Number: US-009507513-2011SP051290

PATIENT
  Sex: Female
  Weight: 104.31 kg

DRUGS (2)
  1. NUVARING [Suspect]
     Indication: POLYCYSTIC OVARIES
     Dosage: UNK
     Route: 067
     Dates: start: 200502, end: 20050314
  2. NUVARING [Suspect]
     Indication: ENDOMETRIOSIS

REACTIONS (8)
  - Hiatus hernia [Unknown]
  - Chest pain [Unknown]
  - Deep vein thrombosis [Recovering/Resolving]
  - Thrombosis [Unknown]
  - Diabetes mellitus [Unknown]
  - Asthma [Unknown]
  - Migraine [Unknown]
  - Off label use [Unknown]
